FAERS Safety Report 8920123 (Version 1)
Quarter: 2012Q4

REPORT INFORMATION
  Report Type: 
  Country: CO (occurrence: CO)
  Receive Date: 20121121
  Receipt Date: 20121121
  Transmission Date: 20130627
  Serious: Yes (Other)
  Sender: FDA-Public Use
  Company Number: CO-PFIZER INC-2012292605

PATIENT
  Age: 59 Year
  Sex: Male

DRUGS (1)
  1. LIPITOR [Suspect]
     Dosage: 80 mg, UNK
     Dates: start: 2007

REACTIONS (1)
  - Infarction [Unknown]
